FAERS Safety Report 19588308 (Version 1)
Quarter: 2021Q3

REPORT INFORMATION
  Report Type: Spontaneous
  Country: US (occurrence: US)
  Receive Date: 20210721
  Receipt Date: 20210721
  Transmission Date: 20211014
  Serious: Yes (Other)
  Sender: FDA-Public Use
  Company Number: US-GLAXOSMITHKLINE-US2021GSK153735

PATIENT
  Sex: Male

DRUGS (12)
  1. ZANTAC [Suspect]
     Active Substance: RANITIDINE HYDROCHLORIDE
     Indication: DYSPEPSIA
     Dosage: UNK, BID
     Route: 065
     Dates: start: 200801, end: 201512
  2. ZANTAC [Suspect]
     Active Substance: RANITIDINE HYDROCHLORIDE
     Indication: DYSPEPSIA
     Dosage: UNK, BID
     Route: 065
     Dates: start: 200801, end: 201512
  3. ZANTAC [Suspect]
     Active Substance: RANITIDINE HYDROCHLORIDE
     Indication: BLOOD PRESSURE MEASUREMENT
  4. RANITIDINE CAPSULE [Suspect]
     Active Substance: RANITIDINE
     Indication: BLOOD PRESSURE MEASUREMENT
  5. ZANTAC [Suspect]
     Active Substance: RANITIDINE HYDROCHLORIDE
     Indication: BLOOD PRESSURE MEASUREMENT
  6. ZANTAC [Suspect]
     Active Substance: RANITIDINE HYDROCHLORIDE
     Indication: STRESS
  7. ZANTAC [Suspect]
     Active Substance: RANITIDINE HYDROCHLORIDE
     Indication: STRESS
  8. RANITIDINE CAPSULE [Suspect]
     Active Substance: RANITIDINE
     Indication: STRESS
  9. ZANTAC [Suspect]
     Active Substance: RANITIDINE HYDROCHLORIDE
     Indication: STRESS
  10. ZANTAC [Suspect]
     Active Substance: RANITIDINE HYDROCHLORIDE
     Indication: DYSPEPSIA
     Dosage: UNK, BID
     Route: 065
     Dates: start: 200801, end: 201512
  11. ZANTAC [Suspect]
     Active Substance: RANITIDINE HYDROCHLORIDE
     Indication: BLOOD PRESSURE MEASUREMENT
  12. RANITIDINE CAPSULE [Suspect]
     Active Substance: RANITIDINE
     Indication: DYSPEPSIA
     Dosage: UNK, BID
     Route: 065
     Dates: start: 200801, end: 201512

REACTIONS (2)
  - Renal cancer [Unknown]
  - Colorectal cancer [Unknown]
